FAERS Safety Report 5696982-0 (Version None)
Quarter: 2008Q2

REPORT INFORMATION
  Report Type: 
  Country: None (occurrence: None)
  Receive Date: 20080408
  Receipt Date: 20070227
  Transmission Date: 20081010
  Serious: No
  Sender: FDA-Public Use
  Company Number: US-BAYER-US-2007-007307

PATIENT
  Age: 19 Year
  Sex: Female
  Weight: 57 kg

DRUGS (2)
  1. YASMIN [Suspect]
     Indication: CONTRACEPTION
     Route: 048
     Dates: start: 20070219
  2. FLOVENT [Concomitant]
     Indication: ASTHMA
     Dosage: UNIT DOSE: 220 ?G
     Route: 048
     Dates: start: 20061101

REACTIONS (1)
  - MENOMETRORRHAGIA [None]
